FAERS Safety Report 10506625 (Version 1)
Quarter: 2014Q3

REPORT INFORMATION
  Report Type: Spontaneous
  Country: US (occurrence: None)
  Receive Date: 20140915
  Receipt Date: 20140915
  Transmission Date: 20150326
  Serious: Yes (Other)
  Sender: FDA-Public Use
  Company Number: JPI-P-030801

PATIENT
  Age: 59 Year
  Sex: Female
  Weight: 67.1 kg

DRUGS (8)
  1. XYREM [Suspect]
     Active Substance: SODIUM OXYBATE
     Indication: NARCOLEPSY
     Route: 048
     Dates: start: 20120727
  2. HYDROCODONE/ACETAMINOPHEN (HYDROCODONE, PARACETAMOL) TABLET ONGOING [Concomitant]
  3. METHYLPREDNISOIONE (METHYLPREDNISOIONE) TABLET ONGOING [Concomitant]
  4. FLECTOR (DICLOFENAC EPOLAMINE) PATCH [Concomitant]
  5. CELEXA (CITALOPRAM HYDROBROMIDE)  TABLET ONGOING [Concomitant]
  6. ADDERALL (AMFETAMINE ASPARTATE, AMFETAMINE SULFATE DEXAMFETAMINE SACCHARATE, DEXAMFETAMINE SULFATE) TABLET ONGOING [Concomitant]
  7. MELOXICAM (MELOXICAM) TABLET ONGOING [Concomitant]
  8. SYNTHYROID (LEVOTHYROXINE SODIUM) TABLET ONGOING [Concomitant]

REACTIONS (2)
  - Fall [None]
  - Facial bones fracture [None]

NARRATIVE: CASE EVENT DATE: 2013
